FAERS Safety Report 4628175-X (Version None)
Quarter: 2005Q2

REPORT INFORMATION
  Report Type: 
  Country: None (occurrence: None)
  Receive Date: 20050401
  Receipt Date: 20040205
  Transmission Date: 20051028
  Serious: Yes (Hospitalization)
  Sender: FDA-Public Use
  Company Number: 8107

PATIENT
  Age: 60 Year
  Sex: Male

DRUGS (5)
  1. LEUCOVORIN CALCIUM [Suspect]
     Indication: RECTAL CANCER
     Dosage: 75 MG; PO
     Route: 048
     Dates: start: 20040118, end: 20040121
  2. TEGAFUR URACIL [Suspect]
     Indication: RECTAL CANCER
     Dosage: 300 MG PO
     Route: 048
     Dates: start: 20040118, end: 20040121
  3. ISOSORBIDE DINITRATE [Concomitant]
  4. ATORVASTATIN CALCIUM [Concomitant]
  5. AMLODIPINE BESYLATE [Concomitant]

REACTIONS (2)
  - DIARRHOEA [None]
  - VOMITING [None]
